FAERS Safety Report 25590736 (Version 1)
Quarter: 2025Q3

REPORT INFORMATION
  Report Type: Spontaneous
  Country: EU (occurrence: EU)
  Receive Date: 20250722
  Receipt Date: 20250722
  Transmission Date: 20251021
  Serious: Yes (Other)
  Sender: TEVA
  Company Number: None

PATIENT
  Age: 28 Year
  Sex: Male
  Weight: 67 kg

DRUGS (2)
  1. OLANZAPINE [Suspect]
     Active Substance: OLANZAPINE
     Indication: Psychotic disorder
     Dosage: 1 TIME AT 8 PM
     Route: 065
     Dates: start: 20250704
  2. PROPIOMAZINE [Concomitant]
     Active Substance: PROPIOMAZINE
     Indication: Product used for unknown indication
     Route: 065

REACTIONS (8)
  - Mental impairment [Not Recovered/Not Resolved]
  - Insomnia [Not Recovered/Not Resolved]
  - Apathy [Not Recovered/Not Resolved]
  - Unevaluable event [Not Recovered/Not Resolved]
  - Somnolence [Not Recovered/Not Resolved]
  - Abnormal sleep-related event [Not Recovered/Not Resolved]
  - Emotional disorder [Unknown]
  - Impaired work ability [Unknown]

NARRATIVE: CASE EVENT DATE: 20130725
